FAERS Safety Report 25577674 (Version 1)
Quarter: 2025Q3

REPORT INFORMATION
  Report Type: Spontaneous
  Country: US (occurrence: US)
  Receive Date: 20250718
  Receipt Date: 20250718
  Transmission Date: 20251020
  Serious: No
  Sender: NOVO NORDISK
  Company Number: US-NOVOPROD-1296731

PATIENT
  Sex: Female

DRUGS (2)
  1. RYBELSUS [Suspect]
     Active Substance: SEMAGLUTIDE
     Indication: Insulin resistance
     Route: 048
  2. RYBELSUS [Suspect]
     Active Substance: SEMAGLUTIDE
     Indication: Glucose tolerance impaired
     Route: 048
     Dates: start: 202401

REACTIONS (5)
  - Gastrointestinal disorder [Unknown]
  - Weight increased [Unknown]
  - Constipation [Unknown]
  - Off label use [Unknown]
  - Wrong technique in product usage process [Unknown]
